FAERS Safety Report 14004713 (Version 1)
Quarter: 2017Q3

REPORT INFORMATION
  Report Type: Spontaneous
  Country: PH (occurrence: PH)
  Receive Date: 20170922
  Receipt Date: 20170922
  Transmission Date: 20171128
  Serious: Yes (Other)
  Sender: FDA-Public Use
  Company Number: PH-009507513-1709PHL009800

PATIENT
  Age: 46 Year
  Sex: Male

DRUGS (1)
  1. NASONEX [Suspect]
     Active Substance: MOMETASONE FUROATE
     Indication: RHINITIS ALLERGIC
     Dosage: 2 DOSES OF SPRAY IN EACH NOSTRIL, UNK
     Route: 045
     Dates: start: 2013

REACTIONS (2)
  - Haemorrhage [Unknown]
  - Haemorrhage intracranial [Unknown]
